FAERS Safety Report 14356311 (Version 1)
Quarter: 2018Q1

REPORT INFORMATION
  Report Type: Spontaneous
  Country: US (occurrence: US)
  Receive Date: 20180105
  Receipt Date: 20180105
  Transmission Date: 20180509
  Serious: No
  Sender: FDA-Public Use
  Company Number: US-ALLERGAN-1732924US

PATIENT
  Age: 39 Year
  Sex: Female

DRUGS (2)
  1. KYBELLA [Suspect]
     Active Substance: DEOXYCHOLIC ACID
     Indication: FAT TISSUE INCREASED
     Dosage: UNK
     Route: 058
     Dates: start: 20170727, end: 20170727
  2. AMOXICILINA                        /00249602/ [Concomitant]
     Active Substance: AMOXICILLIN
     Indication: STOMATITIS
     Dosage: UNK
     Dates: start: 20170729

REACTIONS (2)
  - Injection site reaction [Not Recovered/Not Resolved]
  - Injection site infection [Not Recovered/Not Resolved]
